FAERS Safety Report 21742104 (Version 2)
Quarter: 2023Q1

REPORT INFORMATION
  Report Type: Report from Study
  Country: IN (occurrence: IN)
  Receive Date: 20221216
  Receipt Date: 20230116
  Transmission Date: 20230418
  Serious: Yes (Other)
  Sender: FDA-Public Use
  Company Number: IN-002147023-NVSC2022IN289531

PATIENT
  Age: 38 Year
  Sex: Female

DRUGS (20)
  1. SECUKINUMAB [Suspect]
     Active Substance: SECUKINUMAB
     Indication: Psoriatic arthropathy
     Dosage: 150 MG, QW
     Route: 058
     Dates: start: 20200323
  2. SECUKINUMAB [Suspect]
     Active Substance: SECUKINUMAB
     Indication: Psoriasis
     Dosage: 150 MG, QMO
     Route: 058
     Dates: start: 202003
  3. SECUKINUMAB [Suspect]
     Active Substance: SECUKINUMAB
     Dosage: 150 MG, QMO
     Route: 065
     Dates: start: 20201216
  4. SECUKINUMAB [Suspect]
     Active Substance: SECUKINUMAB
     Dosage: 150 MG, OTHER (ONCE IN 45 DAYS/ ONCE IN 6 WEEKS)
     Route: 058
     Dates: start: 20210130
  5. SECUKINUMAB [Suspect]
     Active Substance: SECUKINUMAB
     Dosage: 150 MG, QMO
     Route: 058
  6. SECUKINUMAB [Suspect]
     Active Substance: SECUKINUMAB
     Dosage: 150 MG, QMO
     Route: 058
     Dates: start: 20221205
  7. NEORAL [Suspect]
     Active Substance: CYCLOSPORINE
     Indication: Product used for unknown indication
     Dosage: 1 DOSAGE FORM, QD (AFTER BREAKFAST TO CONTINUE)
     Route: 065
  8. FAMTAC [Concomitant]
     Indication: Product used for unknown indication
     Dosage: 1 DOSAGE FORM, QD (BEFORE BREAKFAST TO CONTINUE)
     Route: 065
  9. CALCIUM CARBONATE\CHOLECALCIFEROL [Concomitant]
     Active Substance: CALCIUM CARBONATE\CHOLECALCIFEROL
     Indication: Product used for unknown indication
     Dosage: 1 DOSAGE FORM, QD (AFTER BREAKFAST TO CONTINUE)
     Route: 065
  10. FEBUXOSTAT [Concomitant]
     Active Substance: FEBUXOSTAT
     Indication: Product used for unknown indication
     Dosage: 1 DOSAGE FORM (ALTERNATIVE DAY AFTER BREAKFAST FOR 1 MONTH)
     Route: 065
  11. TAMSULOSIN HYDROCHLORIDE [Concomitant]
     Active Substance: TAMSULOSIN HYDROCHLORIDE
     Indication: Product used for unknown indication
     Dosage: 1 DOSAGE FORM, QD (AT BED TIME TO CONTINUE)
     Route: 065
  12. DUPHALAC [Concomitant]
     Active Substance: LACTULOSE
     Indication: Constipation
     Dosage: UNK (10-20 ML AT BED TIME)
     Route: 065
  13. CRIZ M [Concomitant]
     Indication: Product used for unknown indication
     Dosage: 1 DOSAGE FORM, QD (AFTER A DINNER FOR 1 MONTH)
     Route: 065
  14. DOXT SL [Concomitant]
     Indication: Product used for unknown indication
     Dosage: 1 DOSAGE FORM, BID (AFTER BREAKFAST AND AFTER DINNER FOR 5 DAYS)
     Route: 065
  15. TAXIM O [Concomitant]
     Indication: Product used for unknown indication
     Dosage: 1 DOSAGE FORM, BID
     Route: 065
  16. GABAPENTIN [Concomitant]
     Active Substance: GABAPENTIN
     Indication: Product used for unknown indication
     Dosage: 1 DOSAGE FORM, QD (AFTER DINNER FOR 2 MONTHS)
     Route: 065
  17. SEBOWASH [Concomitant]
     Indication: Product used for unknown indication
     Dosage: UNK, QD (1:1 SHAMPOO TO APPLY OVER SCALP )
     Route: 065
  18. TARICH [Concomitant]
     Indication: Product used for unknown indication
     Dosage: UNK, QD (1:1 SHAMPOO TO APPLY OVER SCALP )
     Route: 065
  19. TECZINE [Concomitant]
     Indication: Product used for unknown indication
     Dosage: 1 DOSAGE FORM, QD (AFTER DINNER FOR 2 MONTHS)
     Route: 065
  20. LUMIA 60K [Concomitant]
     Indication: Product used for unknown indication
     Dosage: 1 DOSAGE FORM, QW 9AFTER FOOD FOR 8 WEEKS (8 TABS ONLY)
     Route: 065

REACTIONS (3)
  - Psoriatic arthropathy [Unknown]
  - Weight increased [Unknown]
  - Product use issue [Unknown]

NARRATIVE: CASE EVENT DATE: 20210130
